FAERS Safety Report 4537487-X (Version None)
Quarter: 2004Q4

REPORT INFORMATION
  Report Type: 
  Country: None (occurrence: None)
  Receive Date: 20041216
  Receipt Date: 20031210
  Transmission Date: 20050328
  Serious: Yes (Other)
  Sender: FDA-Public Use
  Company Number: HQWYE532111DEC03

PATIENT
  Age: 42 Year
  Sex: Female
  Weight: 49.94 kg

DRUGS (8)
  1. EFFEXOR XR [Suspect]
     Indication: ANXIETY
     Dosage: 75 MG 1X PER 1 DAY, ORAL
     Route: 048
     Dates: start: 20020701, end: 20020701
  2. CHONDROITIN SULFATE (CHONDROITIN SULFATE, ) [Suspect]
  3. GLUCOSAMINE (GLUCOSAMINE, ) [Suspect]
  4. LINSEED OIL (FLAXSEED OIL, CAPSULE, SOFT GELATIN) [Suspect]
  5. MSM (METHYLSULFONYLMETHANE, TABLET) [Suspect]
     Dosage: ORAL
     Route: 048
  6. OMEGA 3 (FISH OIL, ) [Suspect]
  7. UNSPECIFIED VITAMINS (UNSPECIFIED VITAMINS, UNSPEC) [Suspect]
  8. LEXAPRO [Concomitant]

REACTIONS (2)
  - HEPATITIS FULMINANT [None]
  - MALAISE [None]
